FAERS Safety Report 16594851 (Version 1)
Quarter: 2019Q3

REPORT INFORMATION
  Report Type: Other
  Country: US (occurrence: US)
  Receive Date: 20190718
  Receipt Date: 20190718
  Transmission Date: 20191004
  Serious: No
  Sender: FDA-Public Use
  Company Number: US-SWEDISH ORPHAN BIOVITRUM-2019US0240

PATIENT
  Age: 50 Year
  Sex: Male

DRUGS (3)
  1. KINERET [Suspect]
     Active Substance: ANAKINRA
     Indication: FAMILIAL COLD AUTOINFLAMMATORY SYNDROME
     Route: 058
     Dates: start: 20190114, end: 20190204
  2. ANTIHISTAMINE [Concomitant]
     Active Substance: ANTIHISTAMINES NOS
  3. SYNTHROID [Concomitant]
     Active Substance: LEVOTHYROXINE SODIUM

REACTIONS (10)
  - Lip swelling [Unknown]
  - Weight increased [Unknown]
  - Swelling face [Unknown]
  - Nervousness [Unknown]
  - Swelling of eyelid [Unknown]
  - Swelling [Unknown]
  - Palpitations [Unknown]
  - Injection site erythema [Unknown]
  - Injection site induration [Unknown]
  - Dizziness [Unknown]

NARRATIVE: CASE EVENT DATE: 2019
